FAERS Safety Report 21377746 (Version 1)
Quarter: 2022Q3

REPORT INFORMATION
  Report Type: Spontaneous
  Country: None (occurrence: CA)
  Receive Date: 20220926
  Receipt Date: 20220926
  Transmission Date: 20221026
  Serious: Yes (Hospitalization, Other)
  Sender: FDA-Public Use
  Company Number: CA-PAI Holdings, LLC dba Pharmaceutical Associates, Inc.-2133199

PATIENT
  Age: 20 Month
  Sex: Male

DRUGS (2)
  1. MORPHINE SULFATE [Suspect]
     Active Substance: MORPHINE SULFATE
     Indication: Procedural pain
     Route: 048
  2. UNSPECIFIED INGREDIENT [Suspect]
     Active Substance: UNSPECIFIED INGREDIENT

REACTIONS (2)
  - Toxic leukoencephalopathy [Recovered/Resolved]
  - Neurodevelopmental disorder [Not Recovered/Not Resolved]
